FAERS Safety Report 20891545 (Version 3)
Quarter: 2022Q4

REPORT INFORMATION
  Report Type: Spontaneous
  Country: US (occurrence: US)
  Receive Date: 20220530
  Receipt Date: 20221028
  Transmission Date: 20230112
  Serious: No
  Sender: FDA-Public Use
  Company Number: US-BRISTOL-MYERS SQUIBB COMPANY-2022-034602

PATIENT
  Age: 73 Year
  Sex: Female

DRUGS (2)
  1. REVLIMID [Suspect]
     Active Substance: LENALIDOMIDE
     Indication: Plasma cell myeloma
     Dosage: DAILY ON DAYS 1-21 EVERY 28 DAYS
     Route: 048
     Dates: start: 20200109, end: 20220901
  2. REVLIMID [Suspect]
     Active Substance: LENALIDOMIDE
     Indication: Plasmacytoma
     Dosage: FREQ: D1-21 Q 21 DAYS
     Route: 048
     Dates: start: 20210605

REACTIONS (4)
  - Intentional product use issue [Unknown]
  - SARS-CoV-2 test positive [Recovering/Resolving]
  - Cough [Recovering/Resolving]
  - White blood cell count decreased [Recovered/Resolved]

NARRATIVE: CASE EVENT DATE: 20200109
